FAERS Safety Report 15579778 (Version 3)
Quarter: 2018Q4

REPORT INFORMATION
  Report Type: Spontaneous
  Country: BR (occurrence: BR)
  Receive Date: 20181102
  Receipt Date: 20181114
  Transmission Date: 20190205
  Serious: Yes (Life-Threatening, Hospitalization)
  Sender: FDA-Public Use
  Company Number: BR-SAKK-2018SA301443AA

PATIENT
  Sex: Female
  Weight: 40 kg

DRUGS (8)
  1. RANITIDINE. [Concomitant]
     Active Substance: RANITIDINE
     Indication: PROPHYLAXIS AGAINST GASTROINTESTINAL ULCER
     Dosage: 100 MG, QD
     Route: 042
     Dates: start: 20181026
  2. PHENOBARBITAL. [Concomitant]
     Active Substance: PHENOBARBITAL
     Indication: SEIZURE
     Dosage: 200 MG, QD
     Route: 048
     Dates: start: 20181026
  3. THYMOGLOBULINE [Suspect]
     Active Substance: LAPINE T-LYMPHOCYTE IMMUNE GLOBULIN
     Indication: IMMUNOSUPPRESSION
     Dosage: 125 MG, QD
     Route: 042
     Dates: start: 20181026, end: 20181027
  4. CEFAZOLIN [Concomitant]
     Active Substance: CEFAZOLIN
     Indication: PROPHYLAXIS
     Dosage: 3 G, QD
     Route: 042
     Dates: start: 20181026, end: 20181027
  5. HEPARIN [Concomitant]
     Active Substance: HEPARIN SODIUM
     Indication: ANTICOAGULANT THERAPY
     Dosage: 10000 IU, QD
     Route: 058
     Dates: start: 20181026
  6. SODIUM CHLORIDE. [Concomitant]
     Active Substance: SODIUM CHLORIDE
     Dosage: 500 ML, QD
     Route: 042
     Dates: start: 20171026, end: 20181027
  7. METAMIZOLE SODIUM [Concomitant]
     Active Substance: METAMIZOLE SODIUM
     Indication: PREMEDICATION
     Dosage: 1000 MG, QD
     Route: 042
     Dates: start: 20181026, end: 20181026
  8. HYDROCORTISONE. [Concomitant]
     Active Substance: HYDROCORTISONE
     Indication: PREMEDICATION
     Dosage: 300 MG, QD
     Route: 042
     Dates: start: 20181026, end: 20181026

REACTIONS (4)
  - Pulse abnormal [Recovered/Resolved]
  - Haematocrit decreased [Unknown]
  - Hypotension [Recovered/Resolved]
  - Haemoglobin decreased [Unknown]

NARRATIVE: CASE EVENT DATE: 20181026
